FAERS Safety Report 4655524-9 (Version None)
Quarter: 2005Q2

REPORT INFORMATION
  Report Type: 
  Country: None (occurrence: None)
  Receive Date: 20050505
  Receipt Date: 20050422
  Transmission Date: 20051028
  Serious: Yes (Other)
  Sender: FDA-Public Use
  Company Number: 2005063786

PATIENT
  Age: 11 Year
  Sex: Male
  Weight: 37.6486 kg

DRUGS (1)
  1. ZITHROMAX [Suspect]
     Indication: EAR INFECTION
     Dosage: ORAL
     Route: 048
     Dates: start: 20050203, end: 20050208

REACTIONS (4)
  - BECKER'S MUSCULAR DYSTROPHY [None]
  - BLOOD CREATINE PHOSPHOKINASE INCREASED [None]
  - FATIGUE [None]
  - INFLAMMATION [None]
